FAERS Safety Report 9804368 (Version 1)
Quarter: 2014Q1

REPORT INFORMATION
  Report Type: Spontaneous
  Country: US (occurrence: None)
  Receive Date: 20140106
  Receipt Date: 20140106
  Transmission Date: 20141002
  Serious: Yes (Hospitalization, Other)
  Sender: FDA-Public Use
  Company Number: 2010S1000487

PATIENT
  Age: 61 Year
  Sex: Male

DRUGS (9)
  1. FLEET PHOSPHO-SODA [Suspect]
     Indication: COLONOSCOPY
     Route: 048
     Dates: start: 20040323, end: 20040323
  2. GLYBURIDE (GLIBENCLAMIDE) [Concomitant]
  3. LIPITOR (ATORVASTATIN CALCIUM) [Concomitant]
  4. COZAAR (LOSARTAN POTASSIUM) (50 MILLIGRAM, TABLETS) (LOSARTAN POTASSIUM) [Concomitant]
  5. ATENOLOL (ATENOLOL) [Concomitant]
  6. ASPIRIN (ACETYLSALICYLIC ACID) [Concomitant]
  7. MECLIZINE (MECLOZINE) [Concomitant]
  8. PEPCID (FAMOTIDINE) [Concomitant]
  9. TUMS (CALCIUM CARBONATE, MAGNESIUM CARBONATE, MAGNESIUM TRISILICATE) [Concomitant]

REACTIONS (7)
  - Myocardial infarction [None]
  - Cardiac failure congestive [None]
  - Condition aggravated [None]
  - Renal failure chronic [None]
  - Renal failure acute [None]
  - Nephrolithiasis [None]
  - Haemodialysis [None]
